FAERS Safety Report 9014696 (Version 1)
Quarter: 2013Q1

REPORT INFORMATION
  Report Type: Spontaneous
  Country: US (occurrence: US)
  Receive Date: 20130115
  Receipt Date: 20130115
  Transmission Date: 20140127
  Serious: Yes (Other)
  Sender: FDA-Public Use
  Company Number: US-009507513-1301USA003691

PATIENT
  Age: 54 Year
  Sex: Male

DRUGS (10)
  1. SINGULAIR [Suspect]
     Indication: ASTHMA
     Dosage: 10 MG, QD
     Route: 048
  2. SINGULAIR [Suspect]
     Indication: RHINITIS
  3. PREDNISONE [Suspect]
     Dosage: 20 MG, BID
     Route: 048
  4. AVELOX [Suspect]
  5. FEXOFENADINE HYDROCHLORIDE [Concomitant]
  6. FLONASE [Concomitant]
  7. PROAIR HFA [Concomitant]
  8. QVAR [Concomitant]
  9. SYMBICORT [Concomitant]
  10. ADVAIR [Concomitant]

REACTIONS (3)
  - Anxiety [Unknown]
  - Agitation [Unknown]
  - Insomnia [Unknown]
